FAERS Safety Report 15233017 (Version 2)
Quarter: 2018Q3

REPORT INFORMATION
  Report Type: Spontaneous
  Country: NO (occurrence: NO)
  Receive Date: 20180802
  Receipt Date: 20180807
  Transmission Date: 20181010
  Serious: Yes (Death, Life-Threatening, Hospitalization)
  Sender: FDA-Public Use
  Company Number: NO-TEVA-2018-NO-933641

PATIENT
  Age: 0 Year
  Sex: Male
  Weight: 42 kg

DRUGS (2)
  1. GEMCITABINE HYDROCHLORIDE. [Suspect]
     Active Substance: GEMCITABINE HYDROCHLORIDE
     Indication: INFECTION
     Dosage: 1400 MG, CYCLIC EVERY THREE WEEKS, DAY 1 AND DAY 8
     Route: 042
     Dates: start: 20171031
  2. CARBOPLATIN. [Suspect]
     Active Substance: CARBOPLATIN
     Indication: INFECTION
     Route: 042
     Dates: start: 20171031

REACTIONS (1)
  - Septic shock [Fatal]

NARRATIVE: CASE EVENT DATE: 20171114
